FAERS Safety Report 6311519-0 (Version None)
Quarter: 2009Q3

REPORT INFORMATION
  Report Type: 
  Country: None (occurrence: None)
  Receive Date: 20090817
  Receipt Date: 20090810
  Transmission Date: 20100115
  Serious: Yes (Death, Hospitalization)
  Sender: FDA-Public Use
  Company Number: PHHY2008US10073

PATIENT
  Sex: Male
  Weight: 118.82 kg

DRUGS (14)
  1. EXJADE [Suspect]
     Indication: MYELODYSPLASTIC SYNDROME
     Dosage: 2250 MG DAILY
     Route: 048
     Dates: start: 20070427
  2. EXJADE [Suspect]
     Indication: IRON OVERLOAD
  3. NITROGLYCERIN [Concomitant]
     Dosage: 0.8 MG DAILY
     Route: 062
  4. HYDROCODONE [Concomitant]
     Indication: PAIN
  5. BUPROPION [Concomitant]
     Dosage: 200 MG DAILY
  6. MIRAPEX [Concomitant]
     Dosage: 0.5 MG, BID
  7. CALCIUM WITH VITAMIN D [Concomitant]
     Dosage: UNK
  8. MULTI-VITAMINS [Concomitant]
  9. FORADIL                                 /USA/ [Concomitant]
     Dosage: UNK
  10. QVAR 40 [Concomitant]
     Dosage: UNK
  11. SPIRIVA [Concomitant]
     Dosage: DAILY
  12. PRILOSEC [Concomitant]
     Dosage: 40 MG, QD
  13. CLONAZEPAM [Concomitant]
     Dosage: 1 MG EVERY H.S.
  14. SIMVASTATIN [Concomitant]
     Dosage: 40 MG, QD

REACTIONS (10)
  - BLAST CELL COUNT INCREASED [None]
  - CHRONIC OBSTRUCTIVE PULMONARY DISEASE [None]
  - COUGH [None]
  - HYPOTENSION [None]
  - MALIGNANT NEOPLASM PROGRESSION [None]
  - NEUTROPENIA [None]
  - PLEURITIC PAIN [None]
  - PNEUMONIA [None]
  - PYREXIA [None]
  - RESPIRATORY FAILURE [None]
